FAERS Safety Report 8576805-2 (Version None)
Quarter: 2012Q3

REPORT INFORMATION
  Report Type: 
  Country: None (occurrence: None)
  Receive Date: 20120807
  Receipt Date: 20120803
  Transmission Date: 20120928
  Serious: Yes (Hospitalization)
  Sender: FDA-Public Use
  Company Number: US-AMGEN-US260071

PATIENT
  Age: 56 Year
  Sex: Female
  Weight: 67.2 kg

DRUGS (4)
  1. ASPIRIN [Concomitant]
     Dosage: 81 MG, QD
     Route: 048
  2. CINACALCET HYDROCHLORIDE [Suspect]
     Indication: HYPERPARATHYROIDISM SECONDARY
     Dosage: UNK UNK, QD
     Route: 048
     Dates: start: 20070403
  3. RENAGEL [Concomitant]
     Dosage: 1600 MG, TID
     Route: 048
  4. LOTREL [Concomitant]
     Dosage: 20 MG, QD
     Route: 048

REACTIONS (1)
  - SYNCOPE [None]
